FAERS Safety Report 5402994-4 (Version None)
Quarter: 2007Q3

REPORT INFORMATION
  Report Type: 
  Country: None (occurrence: None)
  Receive Date: 20070718
  Receipt Date: 20061017
  Transmission Date: 20080115
  Serious: Yes (Life-Threatening, Hospitalization, Other)
  Sender: FDA-Public Use
  Company Number: 2006110816

PATIENT
  Age: 79 Year
  Sex: Female
  Weight: 89.3586 kg

DRUGS (2)
  1. CELEBREX [Suspect]
     Indication: OSTEOARTHRITIS
     Dosage: 200 MG (200 MG,1 IN 1 D),ORAL
     Route: 048
     Dates: start: 19990629, end: 20060105
  2. BC POWDER (ACETYSALICYLIC ACID, CAFFEINE, SALICYLAMIDE) [Concomitant]

REACTIONS (4)
  - GASTRIC ULCER [None]
  - HAEMATEMESIS [None]
  - HAEMOGLOBIN DECREASED [None]
  - OESOPHAGEAL ULCER [None]
